FAERS Safety Report 12541002 (Version 1)
Quarter: 2016Q3

REPORT INFORMATION
  Report Type: Spontaneous
  Country: None (occurrence: DK)
  Receive Date: 20160708
  Receipt Date: 20160708
  Transmission Date: 20161109
  Serious: Yes (Disabling)
  Sender: FDA-Public Use
  Company Number: DK-MERCK KGAA-1054812

PATIENT

DRUGS (1)
  1. NOVOTHYROX [Suspect]
     Active Substance: LEVOTHYROXINE SODIUM

REACTIONS (6)
  - Myalgia [None]
  - Headache [None]
  - Arthralgia [None]
  - Musculoskeletal stiffness [None]
  - Swelling face [None]
  - Product substitution issue [None]
